FAERS Safety Report 26063167 (Version 1)
Quarter: 2025Q4

REPORT INFORMATION
  Report Type: Report from Study
  Country: US (occurrence: US)
  Receive Date: 20251119
  Receipt Date: 20251119
  Transmission Date: 20260118
  Serious: Yes (Other)
  Sender: JOHNSON AND JOHNSON
  Company Number: US-JNJFOC-20251159471

PATIENT
  Sex: Female

DRUGS (27)
  1. SPRAVATO [Suspect]
     Active Substance: ESKETAMINE
     Indication: Depression
     Dosage: ?84 MG, 1 TOTAL DOSES?
     Route: 045
     Dates: start: 20191008, end: 20191008
  2. SPRAVATO [Suspect]
     Active Substance: ESKETAMINE
     Dosage: ?28 MG, 1 TOTAL DOSES?
     Route: 045
     Dates: start: 20191017, end: 20191017
  3. SPRAVATO [Suspect]
     Active Substance: ESKETAMINE
     Dosage: ?84 MG, 43 TOTAL DOSES?
     Route: 045
     Dates: start: 20191022, end: 20201203
  4. SPRAVATO [Suspect]
     Active Substance: ESKETAMINE
     Dosage: ?56 MG, 1 TOTAL DOSES?
     Route: 045
     Dates: start: 20201207, end: 20201207
  5. SPRAVATO [Suspect]
     Active Substance: ESKETAMINE
     Dosage: ?112 MG, 6 TOTAL DOSES?
     Route: 045
     Dates: start: 20201210, end: 20210203
  6. SPRAVATO [Suspect]
     Active Substance: ESKETAMINE
     Dosage: ?84  MG, 1 TOTAL DOSES?
     Route: 045
     Dates: start: 20210205, end: 20210205
  7. SPRAVATO [Suspect]
     Active Substance: ESKETAMINE
     Dosage: ?56 MG, 8 TOTAL DOSES?
     Route: 045
     Dates: start: 20190823, end: 20190917
  8. SPRAVATO [Suspect]
     Active Substance: ESKETAMINE
     Dosage: ?112 MG, 2 TOTAL DOSES?
     Route: 045
     Dates: start: 20210208, end: 20210223
  9. SPRAVATO [Suspect]
     Active Substance: ESKETAMINE
     Dosage: ?84 MG, 5 TOTAL DOSES?
     Route: 045
     Dates: start: 20210225, end: 20210311
  10. SPRAVATO [Suspect]
     Active Substance: ESKETAMINE
     Dosage: ?112 MG, 2 TOTAL DOSES?
     Route: 045
     Dates: start: 20210316, end: 20210319
  11. SPRAVATO [Suspect]
     Active Substance: ESKETAMINE
     Dosage: ?84 MG, 3 TOTAL DOSES?
     Route: 045
     Dates: start: 20210322, end: 20210329
  12. SPRAVATO [Suspect]
     Active Substance: ESKETAMINE
     Dosage: ?112 MG, 1 TOTAL DOSES?
     Route: 045
     Dates: start: 20210401, end: 20210401
  13. SPRAVATO [Suspect]
     Active Substance: ESKETAMINE
     Dosage: ?84 MG, 1 TOTAL DOSES?
     Route: 045
     Dates: start: 20210405, end: 20210405
  14. SPRAVATO [Suspect]
     Active Substance: ESKETAMINE
     Dosage: ?112 MG, 1 TOTAL DOSES?
     Route: 045
     Dates: start: 20210412, end: 20210412
  15. SPRAVATO [Suspect]
     Active Substance: ESKETAMINE
     Dosage: ?84 MG, 1 TOTAL DOSES?
     Route: 045
     Dates: start: 20210419, end: 20210419
  16. SPRAVATO [Suspect]
     Active Substance: ESKETAMINE
     Dosage: ?112 MG, 1 TOTAL DOSES?
     Route: 045
     Dates: start: 20210423, end: 20210423
  17. SPRAVATO [Suspect]
     Active Substance: ESKETAMINE
     Dosage: ?84 MG, 2 TOTAL DOSES?
     Route: 045
     Dates: start: 20210426, end: 20210430
  18. SPRAVATO [Suspect]
     Active Substance: ESKETAMINE
     Dosage: ?112 MG, 1 TOTAL DOSES?
     Route: 045
     Dates: start: 20210503, end: 20210503
  19. SPRAVATO [Suspect]
     Active Substance: ESKETAMINE
     Dosage: ?84 MG, 1 TOTAL DOSES?
     Route: 045
     Dates: start: 20210511, end: 20210511
  20. SPRAVATO [Suspect]
     Active Substance: ESKETAMINE
     Dosage: ?112 MG, 1 TOTAL DOSES?
     Route: 045
     Dates: start: 20210518, end: 20210518
  21. SPRAVATO [Suspect]
     Active Substance: ESKETAMINE
     Dosage: ?84 MG, 2 TOTAL DOSES?
     Route: 045
     Dates: start: 20210528, end: 20210603
  22. SPRAVATO [Suspect]
     Active Substance: ESKETAMINE
     Dosage: ?112 MG, 1 TOTAL DOSES?
     Route: 045
     Dates: start: 20210611, end: 20210611
  23. SPRAVATO [Suspect]
     Active Substance: ESKETAMINE
     Dosage: ?84 MG, 5 TOTAL DOSES?
     Route: 045
     Dates: start: 20211015, end: 20211111
  24. SPRAVATO [Suspect]
     Active Substance: ESKETAMINE
     Dosage: ?112 MG, 3 TOTAL DOSES?
     Route: 045
     Dates: start: 20211118, end: 20211209
  25. SPRAVATO [Suspect]
     Active Substance: ESKETAMINE
     Dosage: ?84 MG, 1 TOTAL DOSES?
     Route: 045
     Dates: start: 20211231, end: 20211231
  26. SPRAVATO [Suspect]
     Active Substance: ESKETAMINE
     Dosage: ?112 MG, 2 TOTAL DOSES?
     Route: 045
     Dates: start: 20220104, end: 20220112
  27. SPRAVATO [Suspect]
     Active Substance: ESKETAMINE
     Dosage: ?84 MG, 76 TOTAL DOSES?
     Route: 045
     Dates: start: 20241005, end: 20251014

REACTIONS (2)
  - Hallucination [Unknown]
  - Depression [Unknown]
